FAERS Safety Report 21599247 (Version 1)
Quarter: 2022Q4

REPORT INFORMATION
  Report Type: Spontaneous
  Country: US (occurrence: US)
  Receive Date: 20221115
  Receipt Date: 20221115
  Transmission Date: 20230113
  Serious: Yes (Other)
  Sender: FDA-Public Use
  Company Number: US-SUNOVION-2022SUN003194

PATIENT
  Age: 41 Year
  Sex: Female

DRUGS (1)
  1. LATUDA [Suspect]
     Active Substance: LURASIDONE HYDROCHLORIDE
     Indication: Bipolar disorder
     Dosage: 80 MG, QD
     Route: 048
     Dates: start: 2022

REACTIONS (9)
  - Suicide attempt [Unknown]
  - Self-injurious ideation [Recovering/Resolving]
  - Intrusive thoughts [Unknown]
  - Feeling abnormal [Unknown]
  - Tachyphrenia [Unknown]
  - Depression [Unknown]
  - Mania [Unknown]
  - Anxiety [Unknown]
  - Maternal exposure during pregnancy [Unknown]
